FAERS Safety Report 15517319 (Version 2)
Quarter: 2021Q1

REPORT INFORMATION
  Report Type: Spontaneous
  Country: US (occurrence: US)
  Receive Date: 20181017
  Receipt Date: 20210223
  Transmission Date: 20210419
  Serious: Yes (Other)
  Sender: FDA-Public Use
  Company Number: US-ELI_LILLY_AND_COMPANY-US201810006773

PATIENT
  Age: 80 Year
  Sex: Female

DRUGS (2)
  1. GLIMEPIRIDE. [Concomitant]
     Active Substance: GLIMEPIRIDE
     Indication: TYPE 2 DIABETES MELLITUS
     Dosage: 4 MG, BID
  2. BASAGLAR [Suspect]
     Active Substance: INSULIN GLARGINE
     Indication: TYPE 2 DIABETES MELLITUS
     Dosage: 50 U, UNKNOWN
     Route: 058

REACTIONS (8)
  - Arthritis [Recovering/Resolving]
  - Decreased activity [Recovering/Resolving]
  - Haemoptysis [Recovering/Resolving]
  - Cataract [Recovered/Resolved]
  - Sinusitis [Recovering/Resolving]
  - Influenza [Recovering/Resolving]
  - Ear pain [Recovering/Resolving]
  - Feeling abnormal [Recovering/Resolving]

NARRATIVE: CASE EVENT DATE: 20180920
